FAERS Safety Report 7720545-6 (Version None)
Quarter: 2011Q3

REPORT INFORMATION
  Report Type: 
  Country: None (occurrence: None)
  Receive Date: 20110831
  Receipt Date: 20110831
  Transmission Date: 20111222
  Serious: Yes (Other)
  Sender: FDA-Public Use
  Company Number: None

PATIENT
  Age: 79 Year
  Sex: Male
  Weight: 78.017 kg

DRUGS (1)
  1. MIRTAZAPINE [Suspect]
     Indication: DEMENTIA ALZHEIMER'S TYPE
     Dosage: 15 MG
     Route: 048
     Dates: start: 20110819, end: 20110829

REACTIONS (4)
  - PRODUCT SUBSTITUTION ISSUE [None]
  - SLEEP DISORDER [None]
  - AMNESIA [None]
  - CONFUSIONAL STATE [None]
